FAERS Safety Report 20227854 (Version 6)
Quarter: 2022Q3

REPORT INFORMATION
  Report Type: Spontaneous
  Country: US (occurrence: US)
  Receive Date: 20211224
  Receipt Date: 20220830
  Transmission Date: 20221027
  Serious: No
  Sender: FDA-Public Use
  Company Number: US-GLAXOSMITHKLINE-US2021AMR260588

PATIENT
  Age: 60 Year
  Sex: Female

DRUGS (4)
  1. ZEJULA [Suspect]
     Active Substance: NIRAPARIB
     Indication: Product used for unknown indication
     Dosage: 300 MG, QD
     Dates: start: 202112
  2. ZEJULA [Suspect]
     Active Substance: NIRAPARIB
     Dosage: 200 MG, QD
     Dates: start: 20211206
  3. ZEJULA [Suspect]
     Active Substance: NIRAPARIB
     Dosage: 200 MG, QD
     Dates: start: 20211227
  4. ZEJULA [Suspect]
     Active Substance: NIRAPARIB
     Dosage: UNK (REDUCED DOSE)
     Dates: start: 20220315

REACTIONS (7)
  - Rash [Recovering/Resolving]
  - White blood cell count decreased [Unknown]
  - Headache [Recovering/Resolving]
  - Pain [Recovering/Resolving]
  - Aneurysm [Recovering/Resolving]
  - Back pain [Unknown]
  - Off label use [Unknown]

NARRATIVE: CASE EVENT DATE: 20211206
